FAERS Safety Report 8845700 (Version 1)
Quarter: 2012Q4

REPORT INFORMATION
  Report Type: Report from Study
  Country: US (occurrence: US)
  Receive Date: 20121017
  Receipt Date: 20121017
  Transmission Date: 20130627
  Serious: Yes (Other)
  Sender: FDA-Public Use
  Company Number: US-ROCHE-1111156

PATIENT
  Sex: Male
  Weight: 72.64 kg

DRUGS (7)
  1. VEMURAFENIB [Suspect]
     Indication: MALIGNANT MELANOMA
     Route: 048
     Dates: start: 20120402, end: 201207
  2. VEMURAFENIB [Suspect]
     Route: 048
     Dates: start: 201207, end: 20120828
  3. DEXAMETHASONE [Concomitant]
  4. KEPPRA [Concomitant]
  5. PROTONIX [Concomitant]
  6. ATIVAN [Concomitant]
  7. ZOFRAN [Concomitant]

REACTIONS (13)
  - Weight decreased [Not Recovered/Not Resolved]
  - Photosensitivity reaction [Recovered/Resolved]
  - Sunburn [Not Recovered/Not Resolved]
  - Fatigue [Not Recovered/Not Resolved]
  - Disease progression [Unknown]
  - Skin papilloma [Not Recovered/Not Resolved]
  - Malaise [Not Recovered/Not Resolved]
  - Nausea [Recovered/Resolved]
  - Vomiting [Unknown]
  - Constipation [Unknown]
  - Diarrhoea [Unknown]
  - Dysgeusia [Unknown]
  - Decreased appetite [Unknown]
